FAERS Safety Report 12059580 (Version 1)
Quarter: 2016Q1

REPORT INFORMATION
  Report Type: Spontaneous
  Country: PH (occurrence: PH)
  Receive Date: 20160210
  Receipt Date: 20160210
  Transmission Date: 20160526
  Serious: Yes (Other)
  Sender: FDA-Public Use
  Company Number: PH-TOLMAR, INC.-2016PH001104

PATIENT
  Age: 89 Year
  Sex: Male

DRUGS (7)
  1. ARCOXIA [Concomitant]
     Active Substance: ETORICOXIB
     Dosage: UNK
     Route: 065
  2. LOSARTAN. [Concomitant]
     Active Substance: LOSARTAN
     Route: 065
  3. ZYNAPSE [Concomitant]
     Route: 065
  4. ELIGARD [Suspect]
     Active Substance: LEUPROLIDE ACETATE
     Indication: PROSTATE CANCER
     Dosage: 45 MG, ONCE EVERY 6 MONTHS
     Route: 058
     Dates: start: 201507
  5. PLETAAL [Concomitant]
     Active Substance: CILOSTAZOL
     Route: 065
  6. DOLCET [Concomitant]
     Route: 065
  7. KETOSTERIL [Concomitant]
     Active Substance: AMINO ACIDS
     Route: 065

REACTIONS (1)
  - Hallucination [Unknown]
